FAERS Safety Report 13788749 (Version 1)
Quarter: 2017Q3

REPORT INFORMATION
  Report Type: Spontaneous
  Country: US (occurrence: US)
  Receive Date: 20170725
  Receipt Date: 20170725
  Transmission Date: 20171127
  Serious: No
  Sender: FDA-Public Use
  Company Number: US-UNITED THERAPEUTICS-UNT-2016-019727

PATIENT
  Age: 69 Year
  Sex: Female
  Weight: 85.26 kg

DRUGS (2)
  1. REMODULIN [Suspect]
     Active Substance: TREPROSTINIL
     Indication: PULMONARY HYPERTENSION
     Dosage: 0.100 ?G/KG, CONTINUING
     Route: 058
     Dates: start: 20150608
  2. ADCIRCA [Concomitant]
     Active Substance: TADALAFIL
     Indication: PRODUCT USED FOR UNKNOWN INDICATION

REACTIONS (5)
  - Infusion site nodule [Unknown]
  - Infusion site oedema [Unknown]
  - Infusion site infection [Unknown]
  - Infusion site warmth [Unknown]
  - Device issue [Unknown]

NARRATIVE: CASE EVENT DATE: 201612
